FAERS Safety Report 8585565-0 (Version None)
Quarter: 2012Q3

REPORT INFORMATION
  Report Type: 
  Country: None (occurrence: None)
  Receive Date: 20120810
  Receipt Date: 20120806
  Transmission Date: 20120928
  Serious: Yes (Other)
  Sender: FDA-Public Use
  Company Number: US-ABBOTT-12P-163-0934223-00

PATIENT
  Sex: Male
  Weight: 81.266 kg

DRUGS (4)
  1. HUMIRA [Suspect]
  2. AMLODIPINE [Concomitant]
     Indication: PRODUCT USED FOR UNKNOWN INDICATION
  3. HUMIRA [Suspect]
     Indication: CROHN'S DISEASE
     Dates: start: 20080319
  4. AZILECT [Concomitant]
     Indication: PRODUCT USED FOR UNKNOWN INDICATION

REACTIONS (5)
  - RENAL STONE REMOVAL [None]
  - PRODUCT COLOUR ISSUE [None]
  - ABDOMINAL PAIN [None]
  - ASTHENIA [None]
  - SMALL INTESTINAL OBSTRUCTION [None]
